FAERS Safety Report 20438634 (Version 1)
Quarter: 2022Q1

REPORT INFORMATION
  Report Type: Spontaneous
  Country: US (occurrence: None)
  Receive Date: 20220204
  Receipt Date: 20220204
  Transmission Date: 20220423
  Serious: Yes (Life-Threatening)
  Sender: FDA-Public Use
  Company Number: None

PATIENT
  Age: 1 Day
  Sex: Male
  Weight: 3.56 kg

DRUGS (1)
  1. SURVANTA [Suspect]
     Active Substance: BERACTANT
     Indication: Respiratory distress
     Dosage: FREQUENCY : ONCE;?
     Route: 007
     Dates: start: 20220202, end: 20220202

REACTIONS (1)
  - Endotracheal intubation complication [None]

NARRATIVE: CASE EVENT DATE: 20220202
